FAERS Safety Report 23584424 (Version 1)
Quarter: 2024Q1

REPORT INFORMATION
  Report Type: Spontaneous
  Country: DK (occurrence: None)
  Receive Date: 20240301
  Receipt Date: 20240301
  Transmission Date: 20240410
  Serious: Yes (Death, Life-Threatening, Hospitalization)
  Sender: FDA-Public Use
  Company Number: 2024A049354

PATIENT
  Age: 58 Year
  Sex: Male

DRUGS (6)
  1. IMFINZI [Suspect]
     Active Substance: DURVALUMAB
     Indication: Non-small cell lung cancer stage IIIA
     Dosage: 950.0MG ONCE/SINGLE ADMINISTRATION
     Route: 040
     Dates: start: 20231017, end: 20231017
  2. POTASSIUM CHLORIDE [Concomitant]
     Active Substance: POTASSIUM CHLORIDE
     Indication: Mineral supplementation
     Dates: start: 20210318
  3. BETOLVEX [Concomitant]
     Indication: Vitamin B12 deficiency
     Dates: start: 20200525
  4. AMLODIPIN ^ACCORD^ [Concomitant]
     Indication: Hypertension
     Dates: start: 20200928
  5. LEVOTHYROXINE [Concomitant]
     Active Substance: LEVOTHYROXINE\LEVOTHYROXINE SODIUM
     Indication: Hypothyroidism
     Dates: start: 20181227
  6. PANTOPRAZOL ^STADA^ [Concomitant]
     Indication: Gastrooesophageal reflux disease
     Dates: start: 20230829

REACTIONS (2)
  - Respiratory failure [Fatal]
  - Pneumonitis [Fatal]

NARRATIVE: CASE EVENT DATE: 20231001
